FAERS Safety Report 9658971 (Version 1)
Quarter: 2013Q4

REPORT INFORMATION
  Report Type: Spontaneous
  Country: GB (occurrence: GB)
  Receive Date: 20131031
  Receipt Date: 20131031
  Transmission Date: 20140711
  Serious: Yes (Disabling)
  Sender: FDA-Public Use
  Company Number: GB-AMGEN-GBRSP2013076247

PATIENT
  Age: 61 Year
  Sex: Male

DRUGS (4)
  1. PROLIA [Suspect]
     Indication: OSTEOPOROSIS
     Dosage: UNK
     Route: 065
     Dates: start: 20130809, end: 20130809
  2. ADCAL                              /00637401/ [Concomitant]
     Indication: OSTEOPOROSIS
     Dosage: 1 DF, BID
     Route: 048
     Dates: start: 20130314
  3. CLOPIDOGREL [Concomitant]
     Indication: CEREBROVASCULAR DISORDER
     Dosage: 75 MG, QD
     Route: 048
     Dates: start: 20120221
  4. SIMVASTATIN [Concomitant]
     Indication: CEREBROVASCULAR DISORDER
     Dosage: 40 MG, QD
     Route: 048
     Dates: start: 20120221

REACTIONS (5)
  - Diarrhoea [Not Recovered/Not Resolved]
  - Rash generalised [Not Recovered/Not Resolved]
  - Tongue exfoliation [Not Recovered/Not Resolved]
  - Glossodynia [Not Recovered/Not Resolved]
  - Pruritus [Not Recovered/Not Resolved]
